FAERS Safety Report 13850915 (Version 2)
Quarter: 2017Q3

REPORT INFORMATION
  Report Type: Spontaneous
  Country: US (occurrence: US)
  Receive Date: 20170810
  Receipt Date: 20170831
  Transmission Date: 20171127
  Serious: No
  Sender: FDA-Public Use
  Company Number: US-B.I. PHARMACEUTICALS,INC./RIDGEFIELD-2017-BI-043420

PATIENT
  Age: 64 Year
  Sex: Male

DRUGS (9)
  1. SINGULAIR [Concomitant]
     Active Substance: MONTELUKAST SODIUM
     Indication: HYPERSENSITIVITY
     Dosage: 1 TABLET 1 TIME DAILY;  FORM STRENGTH: 10 MG; FORMULATION: TABLET
     Route: 048
  2. FLONASE [Concomitant]
     Active Substance: FLUTICASONE PROPIONATE
     Indication: PRODUCT USED FOR UNKNOWN INDICATION
     Dosage: 2 SPRAYS EACH NOSTRIL BID;  FORMULATION: NASAL SPRAY;
     Route: 045
  3. SPIRIVA RESPIMAT [Suspect]
     Active Substance: TIOTROPIUM BROMIDE
     Indication: CHRONIC OBSTRUCTIVE PULMONARY DISEASE
     Dosage: 1 INHALATIONS BID;  FORM STRENGTH: 2.5 MCG; FORMULATION: INHALATION SPRAY? ADMINISTRATION CORRECT? N
     Route: 055
     Dates: start: 20170718
  4. ALBUTEROL HFA [Concomitant]
     Active Substance: ALBUTEROL SULFATE
     Indication: CHRONIC OBSTRUCTIVE PULMONARY DISEASE
     Dosage: PRN;  FORMULATION: INHALATION AEROSOL;
     Route: 055
  5. METFORMIN [Concomitant]
     Active Substance: METFORMIN HYDROCHLORIDE
     Indication: GLUCOSE TOLERANCE IMPAIRED
     Dosage: 1 TABLET 1 TIME DAILY;  FORM STRENGTH: 500 MG; FORMULATION: TABLET
     Route: 048
     Dates: start: 2016
  6. LEVOXYL [Concomitant]
     Active Substance: LEVOTHYROXINE SODIUM
     Indication: HYPOTHYROIDISM
     Dosage: 1 TABLET 1 TIME DAILY;  FORM STRENGTH: 0.0125 MG; FORMULATION: TABLET
     Route: 048
  7. LOSARTAN / HYDROCHLOROTHIAZIDE [Concomitant]
     Active Substance: HYDROCHLOROTHIAZIDE\LOSARTAN
     Indication: HYPERTENSION
     Dosage: 1 TABLET BID;  FORM STRENGTH AND UNIT DOSE: 50 MG / 12.5 MG; DAILY DOSE: 100MG/ 25 MG; FORMULATION:
     Route: 048
     Dates: start: 2015
  8. DULERA [Concomitant]
     Active Substance: FORMOTEROL FUMARATE DIHYDRATE\MOMETASONE FUROATE
     Indication: CHRONIC OBSTRUCTIVE PULMONARY DISEASE
     Dosage: 2  INHALATION BID;  FORMULATION: INHALATION AEROSOL;
     Route: 055
     Dates: start: 201705
  9. VIIBRYD [Concomitant]
     Active Substance: VILAZODONE HYDROCHLORIDE
     Indication: DEPRESSION
     Dosage: 1 TABLET 1 TIME DAILY;  FORM STRENGTH: 40 MG; FORMULATION: TABLET
     Route: 048
     Dates: start: 2012

REACTIONS (6)
  - Nasal mucosal discolouration [Not Recovered/Not Resolved]
  - Oropharyngeal pain [Not Recovered/Not Resolved]
  - Sinus congestion [Not Recovered/Not Resolved]
  - Cough [Not Recovered/Not Resolved]
  - Product quality issue [Unknown]
  - Pulmonary congestion [Not Recovered/Not Resolved]

NARRATIVE: CASE EVENT DATE: 201707
